FAERS Safety Report 8285288-1 (Version None)
Quarter: 2012Q2

REPORT INFORMATION
  Report Type: 
  Country: None (occurrence: None)
  Receive Date: 20120413
  Receipt Date: 20120329
  Transmission Date: 20120825
  Serious: Yes (Other)
  Sender: FDA-Public Use
  Company Number: CHPA2012US006437

PATIENT
  Age: 62 Year
  Sex: Female

DRUGS (4)
  1. EXCEDRIN (MIGRAINE) [Suspect]
     Indication: MIGRAINE
     Dosage: 1 DF, UNK
     Route: 048
     Dates: end: 20120325
  2. PREVACID [Concomitant]
     Dosage: 30 MG, UNK
  3. DILANTIN [Concomitant]
     Indication: CONVULSION
     Dosage: UNK, UNK
  4. NEXIUM [Concomitant]
     Dosage: UNK, UNK

REACTIONS (5)
  - UNDERDOSE [None]
  - VOMITING [None]
  - LOSS OF CONSCIOUSNESS [None]
  - CONVULSION [None]
  - MITRAL VALVE PROLAPSE [None]
